FAERS Safety Report 4340092-1 (Version None)
Quarter: 2004Q2

REPORT INFORMATION
  Report Type: 
  Country: None (occurrence: None)
  Receive Date: 20040415
  Receipt Date: 20040415
  Transmission Date: 20050107
  Serious: Yes (Life-Threatening, Hospitalization)
  Sender: FDA-Public Use
  Company Number: None

PATIENT
  Age: 52 Year
  Sex: Male
  Weight: 70.9 kg

DRUGS (21)
  1. HALOPERIDOL [Suspect]
     Indication: AGITATION
     Dosage: 5 MG PER HR INTRAVENOUS
     Route: 042
     Dates: start: 20031129, end: 20031202
  2. METOPROLOL [Suspect]
     Indication: AGITATION
     Dosage: 5MG Q8H PRN INTRAVENOUS
     Route: 042
     Dates: start: 20031129, end: 20031202
  3. COZAAR [Concomitant]
  4. TYLENOL (CAPLET) [Concomitant]
  5. THIAMINE [Concomitant]
  6. M.V.I. [Concomitant]
  7. ATIVAN [Concomitant]
  8. PROTONIX [Concomitant]
  9. PRIMAXIN [Concomitant]
  10. PHENERGAN [Concomitant]
  11. CARDIZEM [Concomitant]
  12. COMBIVENT [Concomitant]
  13. NORCURON [Concomitant]
  14. MAG AND K REPLACEMENT [Concomitant]
  15. PRECEDEX [Concomitant]
  16. TPN [Concomitant]
  17. VIT K [Concomitant]
  18. SOLU-MEDROL [Concomitant]
  19. MORPHINE [Concomitant]
  20. VASOTEC [Concomitant]
  21. INSULIN [Concomitant]

REACTIONS (2)
  - ELECTROCARDIOGRAM QT CORRECTED INTERVAL PROLONGED [None]
  - VENTRICULAR TACHYCARDIA [None]
